FAERS Safety Report 17604665 (Version 5)
Quarter: 2020Q2

REPORT INFORMATION
  Report Type: Spontaneous
  Country: US (occurrence: US)
  Receive Date: 20200331
  Receipt Date: 20200521
  Transmission Date: 20200713
  Serious: Yes (Other)
  Sender: FDA-Public Use
  Company Number: US-PFIZER INC-2020130614

PATIENT
  Age: 68 Year
  Sex: Female
  Weight: 74.84 kg

DRUGS (4)
  1. LYRICA [Suspect]
     Active Substance: PREGABALIN
     Indication: FIBROMYALGIA
  2. LYRICA [Suspect]
     Active Substance: PREGABALIN
     Indication: INTERVERTEBRAL DISC DEGENERATION
  3. LYRICA [Suspect]
     Active Substance: PREGABALIN
     Indication: PAIN
  4. LYRICA [Suspect]
     Active Substance: PREGABALIN
     Indication: BACK PAIN
     Dosage: 150 MG, 3X/DAY
     Route: 048

REACTIONS (7)
  - Eating disorder [Unknown]
  - Vomiting [Unknown]
  - Product dose omission [Unknown]
  - Myocardial infarction [Unknown]
  - Malaise [Unknown]
  - Therapeutic product effect incomplete [Unknown]
  - Feeling abnormal [Unknown]
